FAERS Safety Report 8664431 (Version 2)
Quarter: 2012Q4

REPORT INFORMATION
  Report Type: Report from Study
  Country: ES (occurrence: ES)
  Receive Date: 20120713
  Receipt Date: 20121220
  Transmission Date: 20130627
  Serious: Yes (Hospitalization)
  Sender: FDA-Public Use
  Company Number: ES-PFIZER INC-2012161061

PATIENT
  Age: 70 Year
  Sex: Male
  Weight: 76 kg

DRUGS (21)
  1. IRINOTECAN HCL [Suspect]
     Indication: COLORECTAL CANCER METASTATIC
     Dosage: 180 mg/m2, on day 1 every 14 days
     Route: 042
     Dates: start: 20120216, end: 20120417
  2. IRINOTECAN HCL [Suspect]
     Dosage: 180 mg/m2, on day 1 every 14 days
     Route: 042
     Dates: start: 20120525, end: 20120525
  3. IRINOTECAN HCL [Suspect]
     Dosage: 180 mg/m2, on day 1 every 14 days
     Route: 042
     Dates: start: 20120625
  4. 5-FU [Suspect]
     Indication: COLORECTAL CANCER METASTATIC
     Dosage: 400 mg/m2, bolus on day 1 every 14 days
     Route: 040
     Dates: start: 20120216, end: 20120417
  5. 5-FU [Suspect]
     Dosage: 2400 mg/m2, days 1 and 2 every 14 days
     Route: 041
     Dates: start: 20120216, end: 20120417
  6. 5-FU [Suspect]
     Dosage: 400 mg/m2, bolus on day 1 every 14 days
     Route: 040
     Dates: start: 20120525, end: 20120525
  7. 5-FU [Suspect]
     Dosage: 2400 mg/m2, days 1 and 2 every 14 days
     Route: 041
     Dates: start: 20120525, end: 20120525
  8. 5-FU [Suspect]
     Dosage: 400 mg/m2, bolus on day 1 every 14 days
     Route: 040
     Dates: start: 20120625
  9. 5-FU [Suspect]
     Dosage: 2400 mg/m2, days 1 and 2 every 14 days
     Route: 041
     Dates: start: 20120625
  10. BLINDED THERAPY [Suspect]
     Indication: COLORECTAL CANCER METASTATIC
     Dosage: On day 1 every 14 days
     Route: 042
     Dates: start: 20120216, end: 20120417
  11. BLINDED THERAPY [Suspect]
     Dosage: On day 1 every 14 days
     Route: 042
     Dates: start: 20120525, end: 20120525
  12. FOLINIC ACID [Suspect]
     Indication: COLORECTAL CANCER METASTATIC
     Dosage: 400 mg/m2, on day 1 every 14 days
     Route: 042
     Dates: start: 20120216, end: 20120417
  13. FOLINIC ACID [Suspect]
     Dosage: 400 mg/m2, on day 1 every 14 days
     Route: 042
     Dates: start: 20120525, end: 20120525
  14. FOLINIC ACID [Suspect]
     Dosage: 400 mg/m2, on day 1 every 14 days
     Route: 042
     Dates: start: 20120625
  15. METFORMIN [Concomitant]
     Indication: DIABETES
     Dosage: UNK
     Dates: start: 2000, end: 20120606
  16. GLIBENCLAMIDE [Concomitant]
     Indication: DIABETES
     Dosage: UNK
     Dates: start: 2000, end: 20120606
  17. ACETYLSALICYLIC ACID [Concomitant]
     Indication: THROMBOSIS PROPHYLAXIS
     Dosage: UNK
     Dates: start: 20120522, end: 20120606
  18. FRAXIPARINE [Concomitant]
     Indication: THROMBOSIS PROPHYLAXIS
     Dosage: UNK
     Dates: start: 20120522, end: 20120606
  19. OMEPRAZOLE [Concomitant]
     Indication: PROPHYLAXIS
     Dosage: UNK
     Dates: start: 20120522
  20. LORAZEPAM [Concomitant]
     Indication: PROPHYLAXIS
     Dosage: UNK
     Dates: start: 20120522, end: 20120530
  21. LOPERAMIDE [Concomitant]
     Indication: DIARRHEA
     Dosage: UNK
     Dates: start: 20120528, end: 20120606

REACTIONS (4)
  - Fall [Unknown]
  - Neuropathic arthropathy [Recovered/Resolved]
  - Subdural haematoma [Recovered/Resolved]
  - Subarachnoid haemorrhage [Recovered/Resolved]
